FAERS Safety Report 9233131 (Version 2)
Quarter: 2013Q2

REPORT INFORMATION
  Report Type: Spontaneous
  Country: JP (occurrence: JP)
  Receive Date: 20130416
  Receipt Date: 20130429
  Transmission Date: 20140414
  Serious: Yes (Death, Other)
  Sender: FDA-Public Use
  Company Number: PHHY2013JP036426

PATIENT
  Age: 54 Year
  Sex: Male

DRUGS (4)
  1. IMATINIB [Suspect]
     Indication: GASTROINTESTINAL STROMAL TUMOUR
     Dosage: 400 MG, DAILY
     Route: 048
     Dates: start: 200711
  2. IMATINIB [Suspect]
     Dosage: 300 MG, DAILY
     Route: 048
     Dates: start: 201109
  3. IMATINIB [Suspect]
     Dosage: 400 MG, DAILY
     Route: 048
     Dates: start: 201204
  4. IMATINIB [Suspect]
     Dosage: 300 MG, DAILY
     Route: 048
     Dates: start: 201209

REACTIONS (6)
  - Death [Fatal]
  - Metastases to liver [Unknown]
  - Neoplasm [Unknown]
  - Nodule [Unknown]
  - Flank pain [Unknown]
  - Drug ineffective [Unknown]
